FAERS Safety Report 8851707 (Version 2)
Quarter: 2012Q4

REPORT INFORMATION
  Report Type: 
  Country: US (occurrence: US)
  Receive Date: 20121022
  Receipt Date: 20121214
  Transmission Date: 20130627
  Serious: No
  Sender: FDA-Public Use
  Company Number: US-PFIZER INC-2012260722

PATIENT
  Age: 82 Year
  Sex: Female
  Weight: 68 kg

DRUGS (18)
  1. DEPO-MEDROL [Suspect]
     Indication: BACK PAIN
     Dosage: 80 u x 1
     Route: 008
  2. DEPO-MEDROL [Suspect]
     Indication: RADICULOPATHY
  3. LIPITOR [Concomitant]
     Indication: HYPERLIPIDEMIA
     Dosage: 20 mg, 1x/day
     Route: 048
  4. SONATA [Concomitant]
     Indication: SLEEP DISORDER
     Dosage: 5 mg, as needed
     Route: 048
  5. CHONDROITIN/GLUCOSAMINE [Concomitant]
     Dosage: UNK, 2x/day
  6. CALCIUM [Concomitant]
     Dosage: 500 mg, 1x/day
  7. ASPIRIN [Concomitant]
     Dosage: 81 mg, 1x/day
  8. VITAMIN B6 [Concomitant]
     Dosage: 100 mg, 1x/day
  9. METFORMIN [Concomitant]
     Dosage: 1000 mg, 2x/day
  10. TOVIAZ [Concomitant]
     Dosage: 4 mg, 1x/day
  11. OCUVITE LUTEIN [Concomitant]
     Dosage: UNK, 1x/day
  12. VITAMIN C [Concomitant]
     Dosage: 500 mg, 1x/day
  13. CENTRUM [Concomitant]
     Dosage: UNK, 1x/day
  14. BISOPROLOL FUMARATE [Concomitant]
     Dosage: 10/6.25mg, 1x/day
  15. TRAMADOL HYDROCHLORIDE/ACETAMINOPHEN [Concomitant]
     Dosage: 37.5/325 mg prn
  16. ADVIL [Concomitant]
     Dosage: 200 mg, as needed
  17. FISH OIL [Concomitant]
     Dosage: 1000 mg, 2x/day
  18. ALLOPURINOL [Concomitant]
     Dosage: 300 mg, 1x/day

REACTIONS (3)
  - Headache [Not Recovered/Not Resolved]
  - Neck pain [Not Recovered/Not Resolved]
  - Off label use [Unknown]
